FAERS Safety Report 5275176-7 (Version None)
Quarter: 2007Q1

REPORT INFORMATION
  Report Type: 
  Country: None (occurrence: None)
  Receive Date: 20061213
  Receipt Date: 20060330
  Transmission Date: 20070707
  Serious: No
  Sender: FDA-Public Use
  Company Number: 2006UW02335

PATIENT
  Age: 35 Year
  Sex: Male
  Weight: 115.6672 kg

DRUGS (4)
  1. SEROQUEL [Suspect]
     Indication: OBSESSIVE-COMPULSIVE DISORDER
     Dosage: 500 MG DAILY PO
     Route: 048
     Dates: start: 20040501, end: 20060127
  2. ALTACE [Concomitant]
  3. REMERON [Concomitant]
  4. FLUOXETINE [Concomitant]

REACTIONS (4)
  - BLOOD CHOLESTEROL INCREASED [None]
  - BLOOD TRIGLYCERIDES INCREASED [None]
  - DIABETES MELLITUS [None]
  - WEIGHT DECREASED [None]
